FAERS Safety Report 8410928-3 (Version None)
Quarter: 2012Q2

REPORT INFORMATION
  Report Type: 
  Country: None (occurrence: None)
  Receive Date: 20120605
  Receipt Date: 20120525
  Transmission Date: 20120825
  Serious: Yes (Other)
  Sender: FDA-Public Use
  Company Number: GB-GENZYME-MOZO-1000698

PATIENT
  Age: 44 Year
  Sex: Male
  Weight: 75.6 kg

DRUGS (4)
  1. MOZOBIL [Suspect]
     Indication: HAEMATOPOIETIC STEM CELL MOBILISATION
     Dosage: 18.6 MG, QD
     Route: 058
     Dates: start: 20120305, end: 20120306
  2. ACYCLOVIR [Concomitant]
     Indication: ANTIVIRAL PROPHYLAXIS
     Dosage: 200 MG, BID
     Route: 048
     Dates: start: 20111128, end: 20120223
  3. MOZOBIL [Suspect]
     Indication: NON-HODGKIN'S LYMPHOMA
  4. SEPTRA [Concomitant]
     Indication: ANTIFUNGAL PROPHYLAXIS
     Dosage: 960 MG, 2X/W
     Route: 048
     Dates: start: 20111128, end: 20120223

REACTIONS (1)
  - NEUTROPENIA [None]
